FAERS Safety Report 5852496-6 (Version None)
Quarter: 2008Q3

REPORT INFORMATION
  Report Type: 
  Country: None (occurrence: None)
  Receive Date: 20080821
  Receipt Date: 20080814
  Transmission Date: 20090109
  Serious: No
  Sender: FDA-Public Use
  Company Number: US-BAYER-200830983NA

PATIENT
  Sex: Female

DRUGS (1)
  1. YAZ [Suspect]
     Indication: HYPOMENORRHOEA
     Route: 048

REACTIONS (3)
  - AMENORRHOEA [None]
  - GENITAL HAEMORRHAGE [None]
  - PELVIC PAIN [None]
